FAERS Safety Report 14142471 (Version 1)
Quarter: 2017Q4

REPORT INFORMATION
  Report Type: Spontaneous
  Country: BR (occurrence: BR)
  Receive Date: 20171030
  Receipt Date: 20171030
  Transmission Date: 20180321
  Serious: Yes (Death, Other)
  Sender: FDA-Public Use
  Company Number: BR-ABBVIE-17P-020-2146774-00

PATIENT
  Age: 67 Year
  Sex: Female

DRUGS (2)
  1. DEPAKOTE ER [Suspect]
     Active Substance: DIVALPROEX SODIUM
     Dosage: DAILY DOSE: 750 MG; 250MG IN THE MORNING / 500 MG AT NIGHT
     Route: 065
     Dates: start: 20171004, end: 20171009
  2. DEPAKOTE ER [Suspect]
     Active Substance: DIVALPROEX SODIUM
     Indication: SEIZURE
     Dosage: DAILY DOSE 250 MG; AT NIGHT
     Route: 065
     Dates: start: 201705, end: 2017

REACTIONS (6)
  - Underdose [Unknown]
  - Infarction [Fatal]
  - Seizure [Unknown]
  - Incorrect dose administered [Unknown]
  - Drug ineffective [Unknown]
  - Off label use [Unknown]

NARRATIVE: CASE EVENT DATE: 2017
